FAERS Safety Report 10685241 (Version 1)
Quarter: 2014Q4

REPORT INFORMATION
  Report Type: Spontaneous
  Country: US (occurrence: None)
  Receive Date: 20141217
  Receipt Date: 20141217
  Transmission Date: 20150529
  Serious: Yes (Other)
  Sender: FDA-Public Use
  Company Number: 20140013

PATIENT
  Age: 59 Year
  Sex: Female
  Weight: 79 kg

DRUGS (1)
  1. VENOFER [Suspect]
     Active Substance: IRON SUCROSE
     Indication: IRON DEFICIENCY ANAEMIA
     Dosage: ONCE EVERY 2-5 MINUTES
     Route: 041
     Dates: start: 20140113, end: 20140113

REACTIONS (5)
  - Extravasation [None]
  - Injection site discolouration [None]
  - Injection site bruising [None]
  - Peripheral swelling [None]
  - Infusion site pain [None]

NARRATIVE: CASE EVENT DATE: 20140113
